FAERS Safety Report 17999809 (Version 1)
Quarter: 2020Q3

REPORT INFORMATION
  Report Type: Spontaneous
  Country: US (occurrence: US)
  Receive Date: 20200709
  Receipt Date: 20200709
  Transmission Date: 20201103
  Serious: No
  Sender: FDA-Public Use
  Company Number: US-LEO PHARMA-330442

PATIENT
  Age: 71 Year
  Sex: Male

DRUGS (1)
  1. PICATO [Suspect]
     Active Substance: INGENOL MEBUTATE
     Indication: PRODUCT USED FOR UNKNOWN INDICATION
     Route: 061

REACTIONS (4)
  - Application site irritation [Not Recovered/Not Resolved]
  - Application site pain [Not Recovered/Not Resolved]
  - Accidental exposure to product [Unknown]
  - Application site erythema [Not Recovered/Not Resolved]
